FAERS Safety Report 7260003-9 (Version None)
Quarter: 2011Q1

REPORT INFORMATION
  Report Type: 
  Country: None (occurrence: None)
  Receive Date: 20110130
  Receipt Date: 20101018
  Transmission Date: 20110831
  Serious: No
  Sender: FDA-Public Use
  Company Number: US-ABBOTT-10P-163-0679191-00

PATIENT
  Age: 56 Year
  Sex: Male

DRUGS (2)
  1. UNKNOWN ALLERGY PILLS [Concomitant]
     Indication: PRODUCT USED FOR UNKNOWN INDICATION
  2. HUMIRA [Suspect]
     Indication: PSORIASIS
     Dates: start: 20101007

REACTIONS (7)
  - PARAESTHESIA [None]
  - COUGH [None]
  - COLD SWEAT [None]
  - JOINT WARMTH [None]
  - NAUSEA [None]
  - OROPHARYNGEAL PAIN [None]
  - FEELING HOT [None]
